FAERS Safety Report 15960565 (Version 1)
Quarter: 2019Q1

REPORT INFORMATION
  Report Type: Spontaneous
  Country: US (occurrence: US)
  Receive Date: 20190213
  Receipt Date: 20190213
  Transmission Date: 20190417
  Serious: Yes (Life-Threatening)
  Sender: FDA-Public Use
  Company Number: None

PATIENT
  Age: 26 Year
  Sex: Female
  Weight: 85.5 kg

DRUGS (1)
  1. MICROGESTIN FE 1.5/30 [Suspect]
     Active Substance: ETHINYL ESTRADIOL\NORETHINDRONE ACETATE
     Indication: DYSMENORRHOEA
     Dosage: ?          OTHER STRENGTH:MCG-MG;QUANTITY:1 TABLET(S);?
     Route: 048
     Dates: start: 20140307, end: 20170209

REACTIONS (12)
  - Pain in extremity [None]
  - Blood pressure diastolic increased [None]
  - Weight increased [None]
  - Heart valve incompetence [None]
  - Chest pain [None]
  - Paraesthesia [None]
  - Jaw disorder [None]
  - Gastrooesophageal reflux disease [None]
  - Discomfort [None]
  - Fatigue [None]
  - Oesophageal pain [None]
  - Pelvic pain [None]

NARRATIVE: CASE EVENT DATE: 20160411
